FAERS Safety Report 8251123-0 (Version None)
Quarter: 2012Q1

REPORT INFORMATION
  Report Type: 
  Country: None (occurrence: None)
  Receive Date: 20120328
  Receipt Date: 20120319
  Transmission Date: 20120608
  Serious: Yes (Hospitalization, Other)
  Sender: FDA-Public Use
  Company Number: 2012MA003633

PATIENT
  Age: 73 Year
  Sex: Female

DRUGS (1)
  1. TEMAZEPAM [Suspect]
     Dosage: 40 MG

REACTIONS (4)
  - CATATONIA [None]
  - DRUG WITHDRAWAL SYNDROME [None]
  - AGITATION [None]
  - GAIT DISTURBANCE [None]
